FAERS Safety Report 5563264-7 (Version None)
Quarter: 2007Q4

REPORT INFORMATION
  Report Type: 
  Country: None (occurrence: None)
  Receive Date: 20071217
  Receipt Date: 20071204
  Transmission Date: 20080405
  Serious: Yes (Death, Life-Threatening, Hospitalization, Disabling)
  Sender: FDA-Public Use
  Company Number: GB-AMGEN-US245230

PATIENT
  Age: 63 Year
  Sex: Female
  Weight: 60 kg

DRUGS (11)
  1. ENBREL [Suspect]
     Indication: DRUG USE FOR UNKNOWN INDICATION
     Route: 058
     Dates: start: 20060918, end: 20070729
  2. METHOTREXATE [Suspect]
     Route: 048
     Dates: start: 20020717, end: 20070729
  3. INDOMETHACIN [Concomitant]
     Dosage: UNKNOWN
     Route: 048
  4. CALCIUM WITH VITAMIN D [Concomitant]
     Dosage: UNKNOWN
     Route: 048
  5. FERROUS SULFATE TAB [Concomitant]
     Dosage: UNKNOWN
     Route: 048
  6. RANITIDINE HCL [Concomitant]
     Dosage: UNKNOWN
     Route: 048
  7. FRUSEMIDE [Concomitant]
     Dosage: UNKNOWN
     Route: 048
  8. ATENOLOL [Concomitant]
     Dosage: UNKNOWN
     Route: 048
  9. METFORMIN HCL [Concomitant]
     Dosage: UNKNOWN
     Route: 048
  10. RAMIPRIL [Concomitant]
     Dosage: UNKNOWN
     Route: 048
  11. FOLIC ACID [Concomitant]
     Dosage: UNKNOWN
     Route: 048

REACTIONS (3)
  - ACUTE RESPIRATORY DISTRESS SYNDROME [None]
  - PANCYTOPENIA [None]
  - SEPSIS [None]
